FAERS Safety Report 10428752 (Version 2)
Quarter: 2014Q3

REPORT INFORMATION
  Report Type: Spontaneous
  Country: US (occurrence: US)
  Receive Date: 20140903
  Receipt Date: 20140903
  Transmission Date: 20150326
  Serious: Yes (Hospitalization)
  Sender: FDA-Public Use
  Company Number: US-B.I. PHARMACEUTICALS,INC./RIDGEFIELD-2011-BP-02416BP

PATIENT
  Age: 62 Year
  Sex: Female

DRUGS (7)
  1. DULCOLAX BALANCE [Suspect]
     Active Substance: POLYETHYLENE GLYCOL 3350
     Indication: CONSTIPATION
     Route: 048
     Dates: start: 2010
  2. SPIRIVA [Suspect]
     Active Substance: TIOTROPIUM BROMIDE MONOHYDRATE
     Indication: EMPHYSEMA
     Dosage: 18 MCG
     Route: 055
     Dates: start: 2004
  3. ALBUTEROL. [Concomitant]
     Active Substance: ALBUTEROL
     Indication: PRODUCT USED FOR UNKNOWN INDICATION
     Route: 065
  4. ADVAIR HFA [Suspect]
     Active Substance: FLUTICASONE PROPIONATE\SALMETEROL XINAFOATE
     Indication: CHRONIC OBSTRUCTIVE PULMONARY DISEASE
     Dosage: 2 PUF
     Route: 055
     Dates: start: 2003
  5. DULCOLAX [Concomitant]
     Active Substance: BISACODYL OR DOCUSATE SODIUM
     Indication: PRODUCT USED FOR UNKNOWN INDICATION
     Route: 065
  6. ADVAIR HFA [Suspect]
     Active Substance: FLUTICASONE PROPIONATE\SALMETEROL XINAFOATE
     Indication: ASTHMA
     Dosage: DOSE PER APPLICATION: 250/50 MCG
     Route: 055
  7. ADVAIR HFA [Suspect]
     Active Substance: FLUTICASONE PROPIONATE\SALMETEROL XINAFOATE
     Indication: BRONCHITIS CHRONIC
     Dosage: DOSE PER APPLICATION: 100/50 MCG
     Route: 055

REACTIONS (31)
  - Atypical pneumonia [Unknown]
  - Ear infection [Not Recovered/Not Resolved]
  - Tinnitus [Not Recovered/Not Resolved]
  - Abdominal pain [Not Recovered/Not Resolved]
  - Tinnitus [Unknown]
  - Dry mouth [Not Recovered/Not Resolved]
  - Dyspnoea [Unknown]
  - Nausea [Not Recovered/Not Resolved]
  - Palpitations [Not Recovered/Not Resolved]
  - Vision blurred [Unknown]
  - Flatulence [Unknown]
  - Dry mouth [Not Recovered/Not Resolved]
  - Nervousness [Not Recovered/Not Resolved]
  - Nasopharyngitis [Unknown]
  - Ear discomfort [Unknown]
  - Muscle spasms [Unknown]
  - Heart rate increased [Not Recovered/Not Resolved]
  - Gastric disorder [Recovered/Resolved]
  - Eye pain [Not Recovered/Not Resolved]
  - Choking [Unknown]
  - Oral discharge [Not Recovered/Not Resolved]
  - Blood potassium decreased [Recovered/Resolved]
  - Insomnia [Not Recovered/Not Resolved]
  - Osteoporosis [Not Recovered/Not Resolved]
  - Diverticulitis [Not Recovered/Not Resolved]
  - Off label use [Unknown]
  - Abnormal faeces [Not Recovered/Not Resolved]
  - Abdominal distension [Not Recovered/Not Resolved]
  - Jaw disorder [Not Recovered/Not Resolved]
  - Joint crepitation [Unknown]
  - Dry skin [Not Recovered/Not Resolved]

NARRATIVE: CASE EVENT DATE: 2006
